FAERS Safety Report 25097940 (Version 3)
Quarter: 2025Q3

REPORT INFORMATION
  Report Type: Spontaneous
  Country: US (occurrence: US)
  Receive Date: 20250320
  Receipt Date: 20250816
  Transmission Date: 20251020
  Serious: No
  Sender: ALEXION PHARMACEUTICALS
  Company Number: US-AstraZeneca-CH-00830469AP

PATIENT
  Age: 70 Year
  Sex: Male

DRUGS (1)
  1. BREZTRI [Suspect]
     Active Substance: BUDESONIDE\FORMOTEROL\GLYCOPYRROLATE
     Route: 065

REACTIONS (5)
  - Cough [Unknown]
  - Dyspnoea [Unknown]
  - Drug ineffective [Unknown]
  - Device malfunction [Unknown]
  - Device use issue [Unknown]

NARRATIVE: CASE EVENT DATE: 20250315
